FAERS Safety Report 7540990-1 (Version None)
Quarter: 2011Q2

REPORT INFORMATION
  Report Type: 
  Country: None (occurrence: None)
  Receive Date: 20110610
  Receipt Date: 20110606
  Transmission Date: 20111010
  Serious: Yes (Hospitalization)
  Sender: FDA-Public Use
  Company Number: US-B.I. PHARMACEUTICALS,INC./RIDGEFIELD-2011-BP-14768BP

PATIENT
  Age: 83 Year
  Sex: Male

DRUGS (10)
  1. PRADAXA [Suspect]
     Indication: ATRIAL FIBRILLATION
     Dosage: 300 MG
     Dates: start: 20110502, end: 20110601
  2. CRESTOR [Concomitant]
     Indication: HYPERCHOLESTEROLAEMIA
     Dosage: 10 MG
  3. FLECAINIDE ACETATE [Concomitant]
     Indication: ARRHYTHMIA
  4. GLUCOSAMINE [Concomitant]
     Indication: ROUTINE HEALTH MAINTENANCE
  5. LIDODERM [Concomitant]
  6. COLACE [Concomitant]
     Indication: ROUTINE HEALTH MAINTENANCE
  7. PREDNISONE [Concomitant]
     Dosage: 5 MG
  8. ZOLOFT [Concomitant]
     Dosage: 20 MG
  9. PRILOSEC [Concomitant]
     Dosage: 20 MG
  10. FLOMAX [Concomitant]
     Dosage: 0.4 MG

REACTIONS (1)
  - GASTROINTESTINAL HAEMORRHAGE [None]
